FAERS Safety Report 9205360 (Version 4)
Quarter: 2013Q2

REPORT INFORMATION
  Report Type: Report from Study
  Country: US (occurrence: US)
  Receive Date: 20130402
  Receipt Date: 20130502
  Transmission Date: 20140414
  Serious: Yes (Hospitalization, Other)
  Sender: FDA-Public Use
  Company Number: US-ABBOTT-13P-163-1069406-00

PATIENT
  Age: 33 Year
  Sex: Female
  Weight: 83.99 kg

DRUGS (10)
  1. HUMIRA [Suspect]
     Indication: CROHN^S DISEASE
     Dates: start: 2011
  2. HUMIRA [Suspect]
     Dates: start: 2010, end: 2011
  3. DEPAKOTE [Suspect]
     Indication: CONVULSION
  4. VALPROIC ACID [Suspect]
     Indication: CONVULSION
     Dosage: LIQUID
     Route: 048
  5. REMICADE [Suspect]
     Indication: PRODUCT USED FOR UNKNOWN INDICATION
     Dates: start: 2011, end: 201203
  6. GABAPENTIN [Concomitant]
     Indication: CONVULSION
  7. TOPAMAX [Concomitant]
     Indication: CONVULSION
  8. OXYCODONE [Concomitant]
     Indication: PAIN
  9. OXYCODONE [Concomitant]
     Indication: FIBROMYALGIA
  10. BANANA BAG INFUSIONS [Concomitant]
     Indication: MALABSORPTION

REACTIONS (13)
  - Convulsion [Not Recovered/Not Resolved]
  - Crohn^s disease [Recovering/Resolving]
  - Arthralgia [Recovered/Resolved]
  - Lupus-like syndrome [Recovering/Resolving]
  - Convulsion [Not Recovered/Not Resolved]
  - Joint swelling [Recovering/Resolving]
  - Anxiety [Unknown]
  - Panic attack [Unknown]
  - Hypersensitivity [Unknown]
  - Dehydration [Unknown]
  - Gait disturbance [Unknown]
  - Arthralgia [Unknown]
  - Drug effect incomplete [Unknown]
